FAERS Safety Report 12556197 (Version 1)
Quarter: 2016Q3

REPORT INFORMATION
  Report Type: Spontaneous
  Country: US (occurrence: None)
  Receive Date: 20160713
  Receipt Date: 20160713
  Transmission Date: 20161109
  Serious: No
  Sender: FDA-Public Use
  Company Number: None

PATIENT
  Age: 38 Year
  Sex: Female

DRUGS (1)
  1. IMATINIB MES TAB 400MG [Suspect]
     Active Substance: IMATINIB
     Indication: MYELOID LEUKAEMIA

REACTIONS (7)
  - Fall [None]
  - Nausea [None]
  - Muscle spasms [None]
  - Musculoskeletal disorder [None]
  - Arthralgia [None]
  - Diarrhoea [None]
  - Bone pain [None]

NARRATIVE: CASE EVENT DATE: 20160515
